FAERS Safety Report 16996873 (Version 3)
Quarter: 2019Q4

REPORT INFORMATION
  Report Type: Spontaneous
  Country: US (occurrence: US)
  Receive Date: 20191106
  Receipt Date: 20191227
  Transmission Date: 20200122
  Serious: No
  Sender: FDA-Public Use
  Company Number: US-JNJFOC-20191100450

PATIENT
  Age: 64 Year
  Sex: Female
  Weight: 49.94 kg

DRUGS (1)
  1. WOMENS ROGAINE UNSCENTED [Suspect]
     Active Substance: MINOXIDIL
     Indication: ALOPECIA
     Dosage: 1ML 1 X PER DAY
     Route: 061
     Dates: start: 20191023, end: 20191030

REACTIONS (3)
  - Application site warmth [Recovered/Resolved]
  - Heart rate increased [Recovered/Resolved]
  - Application site irritation [Recovered/Resolved]

NARRATIVE: CASE EVENT DATE: 20191027
